FAERS Safety Report 4928994-6 (Version None)
Quarter: 2006Q1

REPORT INFORMATION
  Report Type: 
  Country: None (occurrence: None)
  Receive Date: 20060223
  Receipt Date: 20060210
  Transmission Date: 20060701
  Serious: Yes (Other)
  Sender: FDA-Public Use
  Company Number: 2006021067

PATIENT
  Sex: Female

DRUGS (10)
  1. DETROL [Suspect]
     Indication: HYPERTONIC BLADDER
     Dosage: 2 MG, DAILY INTERVAL: EVERY DAY
     Dates: end: 20051201
  2. DETROL LA [Suspect]
     Indication: HYPERTONIC BLADDER
     Dosage: DAILY INTERVAL: EVERY DAY
     Dates: start: 20051001, end: 20060208
  3. SYNTHROID [Concomitant]
  4. ZETIA [Concomitant]
  5. CALCIUM (CALCIUM) [Concomitant]
  6. MULTIVITAMIN [Concomitant]
  7. MAGNESIUM (MAGNESIUM) [Concomitant]
  8. LUTEIN (XANTHOPHYLL) [Concomitant]
  9. OCUVITE (ASCORBIC ACID, RETINOL, TOCOPHEROL) [Concomitant]
  10. OMEGA 3 (FISH OIL) [Concomitant]

REACTIONS (11)
  - ABDOMINAL PAIN UPPER [None]
  - ARTHRITIS [None]
  - CONDITION AGGRAVATED [None]
  - CONSTIPATION [None]
  - DIZZINESS [None]
  - DRY EYE [None]
  - HEADACHE [None]
  - MACULAR DEGENERATION [None]
  - ONYCHOMYCOSIS [None]
  - PHARMACEUTICAL PRODUCT COMPLAINT [None]
  - WEIGHT INCREASED [None]
